FAERS Safety Report 9036334 (Version 1)
Quarter: 2013Q1

REPORT INFORMATION
  Report Type: Report from Study
  Country: US (occurrence: US)
  Receive Date: 20130129
  Receipt Date: 20130129
  Transmission Date: 20140127
  Serious: No
  Sender: FDA-Public Use
  Company Number: US-ABBOTT-12P-163-0889001-00

PATIENT
  Age: 25 Year
  Sex: Female

DRUGS (5)
  1. HUMIRA 40 MG/0.8 ML PEN [Suspect]
     Indication: PSORIASIS
     Dates: start: 20111128
  2. CHANTIX [Concomitant]
     Indication: TOBACCO USER
  3. BIRTH CONTROL [Concomitant]
     Indication: OVARIAN CYST
  4. DEPAKOTE [Concomitant]
     Indication: EPILEPSY
     Route: 048
  5. MIRAPEX [Concomitant]
     Indication: RESTLESS LEGS SYNDROME
     Dosage: DAILY, AT BEDTIME
     Route: 048

REACTIONS (4)
  - Injection site papule [Not Recovered/Not Resolved]
  - Injection site pain [Not Recovered/Not Resolved]
  - Injection site erythema [Not Recovered/Not Resolved]
  - Injection site swelling [Not Recovered/Not Resolved]
